FAERS Safety Report 7296455-8 (Version None)
Quarter: 2011Q1

REPORT INFORMATION
  Report Type: 
  Country: None (occurrence: None)
  Receive Date: 20110216
  Receipt Date: 20110211
  Transmission Date: 20110831
  Serious: Yes (Death, Hospitalization)
  Sender: FDA-Public Use
  Company Number: BE-ROCHE-751252

PATIENT
  Sex: Female

DRUGS (16)
  1. INTERFERON ALFA [Suspect]
     Dosage: TDD: 3 MIL/IU, CYCLIC
     Route: 058
     Dates: start: 20100211, end: 20101229
  2. BROMHEXIN [Concomitant]
     Indication: COUGH
     Dates: start: 20090812
  3. ACETYLSALICYLIC ACID [Concomitant]
     Indication: HYPERTENSION
     Dates: start: 20020701
  4. INSULIN [Concomitant]
     Indication: DIABETES MELLITUS
     Dates: start: 19920101
  5. AMLODIPINE [Concomitant]
     Indication: HYPERTENSION
     Dates: start: 20090922
  6. OMNIBIONTA [Concomitant]
     Indication: PROPHYLAXIS
     Dates: start: 20091015
  7. INNOHEP [Concomitant]
     Dates: start: 20100518
  8. SIMVASTATIN [Concomitant]
     Dates: start: 20020701
  9. LISINOPRIL [Concomitant]
     Indication: HYPERTENSION
     Dates: start: 20090130
  10. BEVACIZUMAB [Suspect]
     Dosage: DAILY DOSE REPORTED AS 10 MG/KG, CYCLIC
     Route: 042
     Dates: start: 20100211, end: 20101229
  11. METHIMAZOLE [Concomitant]
     Indication: HYPERTHYROIDISM
  12. CEFATRIZINE [Concomitant]
     Dates: start: 20090922
  13. AGYRAX [Concomitant]
     Dates: start: 20091015
  14. INSULIN GLARGINE [Concomitant]
     Indication: DIABETES MELLITUS
     Dates: start: 20070101
  15. BETAHISTINE [Concomitant]
     Dosage: INDICATION: EQUILIBRIUM DISURBANCE
     Dates: start: 20091230
  16. ACETAMINOPHEN [Concomitant]
     Indication: HEADACHE
     Dosage: INDICATION HEADACHE AND MUSCULAR PAIN
     Dates: start: 20090218

REACTIONS (3)
  - CEREBROVASCULAR ACCIDENT [None]
  - DEATH [None]
  - EPILEPSY [None]
